FAERS Safety Report 9106484 (Version 2)
Quarter: 2013Q2

REPORT INFORMATION
  Report Type: Spontaneous
  Country: US (occurrence: US)
  Receive Date: 20130219
  Receipt Date: 20130411
  Transmission Date: 20140414
  Serious: No
  Sender: FDA-Public Use
  Company Number: US-ASTRAZENECA-2013SE08537

PATIENT
  Age: 66 Year
  Sex: Male
  Weight: 99.3 kg

DRUGS (10)
  1. SYMBICORT PMDI [Suspect]
     Indication: CHRONIC OBSTRUCTIVE PULMONARY DISEASE
     Dosage: 160/4.5 MCG TWO PUFFS BID
     Route: 055
     Dates: start: 201210, end: 201301
  2. SYMBICORT PMDI [Suspect]
     Indication: CHRONIC OBSTRUCTIVE PULMONARY DISEASE
     Dosage: 160/4.5 MCG ONE PUFF BID
     Route: 055
     Dates: start: 201301
  3. SYMBICORT PMDI [Suspect]
     Indication: CHRONIC OBSTRUCTIVE PULMONARY DISEASE
     Dosage: 160/4.5 MCG TWO PUFFS BID
     Route: 055
     Dates: start: 20130119
  4. SYMBICORT PMDI [Suspect]
     Indication: CHRONIC OBSTRUCTIVE PULMONARY DISEASE
     Dosage: 160/4.5 MCG TWO PUFFS BID
     Route: 055
     Dates: start: 20130204
  5. NEXIUM [Suspect]
     Route: 048
  6. METOPROLOL [Suspect]
     Route: 048
  7. ERY TAB [Concomitant]
  8. AVAPRO [Concomitant]
  9. LIPITOR [Concomitant]
  10. FLOMAX [Concomitant]

REACTIONS (2)
  - Intentional drug misuse [Not Recovered/Not Resolved]
  - Cough [Not Recovered/Not Resolved]
